FAERS Safety Report 6945529-7 (Version None)
Quarter: 2010Q3

REPORT INFORMATION
  Report Type: 
  Country: None (occurrence: None)
  Receive Date: 20100827
  Receipt Date: 20100823
  Transmission Date: 20110219
  Serious: Yes (Hospitalization)
  Sender: FDA-Public Use
  Company Number: US-ROCHE-722910

PATIENT
  Sex: Male

DRUGS (2)
  1. PEGASYS [Suspect]
     Route: 065
     Dates: start: 20100813
  2. RIBAVIRIN [Suspect]
     Route: 065
     Dates: start: 20100813

REACTIONS (1)
  - HEART RATE DECREASED [None]
